FAERS Safety Report 8420342-2 (Version None)
Quarter: 2012Q2

REPORT INFORMATION
  Report Type: 
  Country: None (occurrence: None)
  Receive Date: 20120607
  Receipt Date: 20120605
  Transmission Date: 20120825
  Serious: Yes (Death)
  Sender: FDA-Public Use
  Company Number: US-AMGEN-USASP2012035065

PATIENT
  Age: 79 Year
  Sex: Male

DRUGS (3)
  1. SENSIPAR [Suspect]
     Dosage: 60 MG, QD
     Dates: start: 20120212
  2. SENSIPAR [Suspect]
     Indication: RENAL FAILURE CHRONIC
     Dosage: 30 MG, QD
     Dates: start: 20110419
  3. SENSIPAR [Suspect]
     Dosage: UNK

REACTIONS (1)
  - DEATH [None]
